FAERS Safety Report 15731231 (Version 2)
Quarter: 2018Q4

REPORT INFORMATION
  Report Type: Other
  Country: CH (occurrence: CH)
  Receive Date: 20181217
  Receipt Date: 20181220
  Transmission Date: 20190205
  Serious: Yes (Death, Hospitalization)
  Sender: FDA-Public Use
  Company Number: CH-ARALEZ PHARMACEUTICALS R+D INC.-2018-ARA-003220

PATIENT
  Age: 82 Year
  Sex: Male

DRUGS (13)
  1. LYRICA [Suspect]
     Active Substance: PREGABALIN
     Indication: PRODUCT USED FOR UNKNOWN INDICATION
     Dosage: 75 MG, BID
     Route: 048
     Dates: end: 20170820
  2. METOPROLOL SUCCINATE. [Suspect]
     Active Substance: METOPROLOL SUCCINATE
     Indication: PRODUCT USED FOR UNKNOWN INDICATION
     Dosage: 50 MG, BID
     Route: 048
  3. PRAVASTATIN. [Concomitant]
     Active Substance: PRAVASTATIN
     Dosage: 40 MG, QD
     Route: 048
  4. TOVIAZ [Suspect]
     Active Substance: FESOTERODINE FUMARATE
     Indication: PRODUCT USED FOR UNKNOWN INDICATION
     Dosage: 4 MG, QD
  5. STRUCTUM                           /02117803/ [Concomitant]
     Dosage: 800 MG, QD
     Route: 048
     Dates: start: 20170823
  6. DAFALGAN [Concomitant]
     Active Substance: ACETAMINOPHEN
     Dosage: 1000 MG, TID
     Route: 048
  7. MODURETIC 5-50 [Suspect]
     Active Substance: AMILORIDE HYDROCHLORIDE\HYDROCHLOROTHIAZIDE
     Indication: PRODUCT USED FOR UNKNOWN INDICATION
     Dosage: 1 DF, QD
     Route: 048
     Dates: end: 20170820
  8. DIGOXINE [Suspect]
     Active Substance: DIGOXIN
     Indication: PRODUCT USED FOR UNKNOWN INDICATION
     Dosage: .125 MG, UNK
     Route: 048
     Dates: end: 20170824
  9. RIVOTRIL [Concomitant]
     Active Substance: CLONAZEPAM
     Dosage: .5 MG, QD
     Route: 048
     Dates: start: 20170820
  10. LAXOBERON [Concomitant]
     Active Substance: SODIUM PICOSULFATE
     Dosage: 5 MG, QD
     Route: 048
  11. XARELTO [Suspect]
     Active Substance: RIVAROXABAN
     Indication: PRODUCT USED FOR UNKNOWN INDICATION
     Dosage: 20 MG, QD
  12. RASILEZ [Concomitant]
     Active Substance: ALISKIREN
     Dosage: 300 MG, QD
     Route: 048
  13. MOVICOL [Concomitant]
     Active Substance: POLYETHYLENE GLYCOL 3350\POTASSIUM CHLORIDE\SODIUM BICARBONATE\SODIUM CHLORIDE
     Dosage: 1 SACHET DAILY
     Route: 048

REACTIONS (2)
  - Fall [Fatal]
  - Haematoma [Fatal]

NARRATIVE: CASE EVENT DATE: 20170819
